FAERS Safety Report 20298310 (Version 19)
Quarter: 2025Q1

REPORT INFORMATION
  Report Type: Report from Study
  Country: CO (occurrence: CO)
  Receive Date: 20220105
  Receipt Date: 20250322
  Transmission Date: 20250409
  Serious: Yes (Other)
  Sender: ROCHE
  Company Number: CO-ROCHE-2988767

PATIENT
  Age: 59 Year
  Sex: Female

DRUGS (15)
  1. KADCYLA [Suspect]
     Active Substance: ADO-TRASTUZUMAB EMTANSINE
     Indication: Breast cancer
     Route: 042
     Dates: start: 20201026, end: 20220817
  2. KADCYLA [Suspect]
     Active Substance: ADO-TRASTUZUMAB EMTANSINE
     Route: 042
     Dates: start: 20221103
  3. HERCEPTIN [Suspect]
     Active Substance: TRASTUZUMAB
     Indication: Breast cancer
     Dosage: 6 CYCLES
     Route: 042
     Dates: start: 20191025, end: 20200212
  4. HERCEPTIN [Suspect]
     Active Substance: TRASTUZUMAB
     Dosage: 9 CYCLES
     Route: 042
     Dates: start: 20200326, end: 20200929
  5. HERCEPTIN [Suspect]
     Active Substance: TRASTUZUMAB
     Route: 042
     Dates: start: 20190416, end: 20190612
  6. HERCEPTIN [Suspect]
     Active Substance: TRASTUZUMAB
     Route: 042
     Dates: start: 20240711, end: 20241230
  7. HERCEPTIN [Suspect]
     Active Substance: TRASTUZUMAB
     Route: 042
     Dates: start: 20250213
  8. PERJETA [Suspect]
     Active Substance: PERTUZUMAB
     Indication: Breast cancer
     Dosage: 6 CYCLES
     Route: 042
     Dates: start: 20191025, end: 20200212
  9. PERJETA [Suspect]
     Active Substance: PERTUZUMAB
     Dosage: 9 CYCLES
     Route: 042
     Dates: start: 20200326, end: 20200929
  10. DOCETAXEL [Suspect]
     Active Substance: DOCETAXEL
     Indication: Breast cancer
     Dosage: 6 CYCLES
     Route: 042
     Dates: start: 20191025, end: 20200212
  11. DOCETAXEL [Suspect]
     Active Substance: DOCETAXEL
     Route: 042
     Dates: start: 20190416, end: 20190612
  12. EXEMESTANE [Suspect]
     Active Substance: EXEMESTANE
     Indication: Breast cancer
     Route: 048
     Dates: start: 20200312
  13. ONDANSETRON [Concomitant]
     Active Substance: ONDANSETRON
     Route: 048
     Dates: start: 20210525
  14. ACETAMINOPHEN [Concomitant]
     Active Substance: ACETAMINOPHEN
     Route: 048
     Dates: start: 20210525
  15. PREGABALIN [Concomitant]
     Active Substance: PREGABALIN
     Route: 048
     Dates: start: 20210525

REACTIONS (13)
  - Hyperbilirubinaemia [Recovered/Resolved]
  - Thrombocytopenia [Unknown]
  - Anaemia [Unknown]
  - Hyperbilirubinaemia [Recovered/Resolved]
  - Hyperbilirubinaemia [Unknown]
  - Calculus urinary [Recovering/Resolving]
  - Seizure [Recovered/Resolved]
  - Acne [Recovering/Resolving]
  - Folliculitis [Recovered/Resolved]
  - Chronic gastritis [Recovering/Resolving]
  - Helicobacter infection [Recovering/Resolving]
  - Urinary tract infection [Recovered/Resolved]
  - Mitral valve incompetence [Recovering/Resolving]

NARRATIVE: CASE EVENT DATE: 20210731
